FAERS Safety Report 12929498 (Version 6)
Quarter: 2017Q1

REPORT INFORMATION
  Report Type: Spontaneous
  Country: US (occurrence: US)
  Receive Date: 20161110
  Receipt Date: 20170206
  Transmission Date: 20170428
  Serious: Yes (Hospitalization, Other)
  Sender: FDA-Public Use
  Company Number: US-GLAXOSMITHKLINE-US2016GSK165785

PATIENT
  Age: 59 Year
  Sex: Female
  Weight: 106 kg

DRUGS (20)
  1. CARVEDILOL. [Suspect]
     Active Substance: CARVEDILOL
     Indication: PRODUCT USED FOR UNKNOWN INDICATION
     Dosage: UNK, U
  2. METFORMIN [Concomitant]
     Active Substance: METFORMIN HYDROCHLORIDE
  3. L-THYROXINE SODIUM [Concomitant]
     Active Substance: LEVOTHYROXINE SODIUM
  4. LIPITOR [Concomitant]
     Active Substance: ATORVASTATIN CALCIUM
  5. SYNTHROID [Concomitant]
     Active Substance: LEVOTHYROXINE SODIUM
  6. GLUCOPHAGE [Concomitant]
     Active Substance: METFORMIN HYDROCHLORIDE
  7. DIABETA (GLYBURIDE) [Concomitant]
  8. CARVEDILOL. [Suspect]
     Active Substance: CARVEDILOL
     Dosage: 25 MG, QD
  9. LEVOTHROID [Concomitant]
     Active Substance: LEVOTHYROXINE SODIUM
  10. ATORVASTATIN [Concomitant]
     Active Substance: ATORVASTATIN
  11. FUROSEMIDE. [Concomitant]
     Active Substance: FUROSEMIDE
  12. ENTRESTO [Suspect]
     Active Substance: SACUBITRIL\VALSARTAN
     Indication: CARDIAC FAILURE
     Dosage: 24/26 MG TAB, U
     Dates: start: 201608
  13. GLYBURIDE. [Concomitant]
     Active Substance: GLYBURIDE
  14. PRINIVIL [Concomitant]
     Active Substance: LISINOPRIL
  15. GLIBENCLAMIDE [Concomitant]
     Active Substance: GLYBURIDE
  16. COREG [Suspect]
     Active Substance: CARVEDILOL
     Indication: CARDIAC FAILURE
     Dosage: 25 MG, BID
     Route: 048
     Dates: start: 20160323
  17. ENTRESTO [Suspect]
     Active Substance: SACUBITRIL\VALSARTAN
     Dosage: 49/51 DF, BID
     Route: 048
  18. SPIRONOLACTONE. [Concomitant]
     Active Substance: SPIRONOLACTONE
     Indication: CARDIAC FAILURE
     Dosage: 25 MG, QD
  19. COREG [Suspect]
     Active Substance: CARVEDILOL
     Dosage: 6.25 MG, BID
     Route: 048
  20. LASIX [Concomitant]
     Active Substance: FUROSEMIDE

REACTIONS (20)
  - Congestive cardiomyopathy [Unknown]
  - Echocardiogram abnormal [Unknown]
  - Cardiomegaly [Unknown]
  - Aortic valve incompetence [Unknown]
  - Carotid artery stenosis [Unknown]
  - Aortic disorder [Unknown]
  - Tricuspid valve incompetence [Unknown]
  - Mitral valve incompetence [Unknown]
  - Left ventricular dilatation [Unknown]
  - Diastolic dysfunction [Unknown]
  - Bundle branch block left [Unknown]
  - Dyspnoea [Recovering/Resolving]
  - Essential hypertension [Unknown]
  - Left ventricular dysfunction [Unknown]
  - Ventricular extrasystoles [Unknown]
  - Carotid bruit [Unknown]
  - Cardiac failure congestive [Unknown]
  - Ventricular hypokinesia [Unknown]
  - Cardiac murmur [Unknown]
  - Bundle branch block [Unknown]

NARRATIVE: CASE EVENT DATE: 201507
